FAERS Safety Report 6507284-4 (Version None)
Quarter: 2009Q4

REPORT INFORMATION
  Report Type: 
  Country: None (occurrence: None)
  Receive Date: 20091221
  Receipt Date: 20091216
  Transmission Date: 20100525
  Serious: Yes (Death)
  Sender: FDA-Public Use
  Company Number: PHEH2009US11969

PATIENT
  Sex: Female
  Weight: 53.061 kg

DRUGS (17)
  1. EXJADE [Suspect]
     Indication: IRON OVERLOAD
     Dosage: 1000 MG, DAILY
     Route: 048
  2. ASPIRIN [Concomitant]
     Dosage: 81 MG, DAILY
     Route: 048
  3. CALCIUM [Concomitant]
     Dosage: 100 MG, DAILY
     Route: 048
  4. CELEBREX [Concomitant]
     Dosage: 200 MG, DAILY
     Route: 048
  5. CIPRO [Concomitant]
     Dosage: 500 MG, DAILY
     Route: 048
  6. LASIX [Concomitant]
     Dosage: 0.5 MG, AS DIRECTED
     Route: 048
  7. NEURONTIN [Concomitant]
     Dosage: 100 MG, DAILY AS NEEDED
     Route: 048
  8. NEXIUM [Concomitant]
     Dosage: 40 MG, DAILY
     Route: 048
  9. OXYGEN [Concomitant]
     Dosage: 3 L/MIN, AS DIRECTED
  10. POTASSIUM CHLORIDE [Concomitant]
     Dosage: 10 MEQ, DAILY
     Route: 048
  11. SENOKOT [Concomitant]
     Dosage: 8.6-50 MG, 1 TABLET TWICE DAILY AS NEEDED
     Route: 048
  12. VALIUM [Concomitant]
     Indication: ANXIETY
     Dosage: 5 MG, EVERY 6-8 HOURS AS NEEDED
     Route: 048
  13. VICODIN [Concomitant]
     Indication: PAIN
     Dosage: 5-500 MG, 1 TABLET EVERY 4 HOURS AS NEEDED
     Route: 048
  14. VITAMIN D [Concomitant]
     Dosage: 50000 UNIT WEEKLY FOR 8 WEEKS, THEN 800IU DAILY
     Route: 048
  15. XALATAN [Concomitant]
     Dosage: 1 DROP, DAILY AT BEDTIME
     Route: 047
  16. REVLIMID [Concomitant]
     Indication: ANAEMIA
  17. BLOOD CELLS, RED [Concomitant]

REACTIONS (5)
  - BLADDER DISCOMFORT [None]
  - CARDIAC ARREST [None]
  - DIARRHOEA [None]
  - MUSCULOSKELETAL DISCOMFORT [None]
  - PRURITUS [None]
